FAERS Safety Report 7315957-9 (Version None)
Quarter: 2011Q1

REPORT INFORMATION
  Report Type: 
  Country: None (occurrence: None)
  Receive Date: 20110225
  Receipt Date: 20110217
  Transmission Date: 20110831
  Serious: Yes (Death, Hospitalization)
  Sender: FDA-Public Use
  Company Number: NO-TEVA-267897ISR

PATIENT
  Sex: Female

DRUGS (4)
  1. WARFARIN SODIUM [Interacting]
     Indication: THROMBOSIS PROPHYLAXIS
     Route: 048
  2. ALBYL-E [Concomitant]
     Indication: CEREBRAL INFARCTION
     Route: 048
     Dates: start: 20010101
  3. TIMOLOL [Concomitant]
     Indication: GLAUCOMA
     Route: 047
  4. SIMVASTATIN [Suspect]
     Indication: HYPERLIPIDAEMIA
     Dates: start: 20060301

REACTIONS (4)
  - INTERNATIONAL NORMALISED RATIO INCREASED [None]
  - DEATH [None]
  - DRUG INTERACTION [None]
  - CEREBRAL HAEMORRHAGE [None]
